FAERS Safety Report 10177507 (Version 1)
Quarter: 2014Q2

REPORT INFORMATION
  Report Type: Spontaneous
  Country: JP (occurrence: JP)
  Receive Date: 20140516
  Receipt Date: 20140516
  Transmission Date: 20141212
  Serious: Yes (Other)
  Sender: FDA-Public Use
  Company Number: JP-MYLANLABS-2014S1010581

PATIENT
  Age: 63 Year
  Sex: Male

DRUGS (5)
  1. TOCILIZUMAB [Suspect]
     Route: 065
  2. METHOTREXATE [Suspect]
     Dosage: 8 MG/WEEK
     Route: 065
  3. PREDNISOLONE [Concomitant]
     Dosage: 7 MG/D
     Route: 048
  4. ETANERCEPT [Concomitant]
     Route: 065
  5. ADALIMUMAB [Concomitant]
     Dosage: 40MG EVERY OTHER WEEK
     Route: 065

REACTIONS (2)
  - Encephalopathy [Recovering/Resolving]
  - Encephalitis autoimmune [Recovering/Resolving]
